FAERS Safety Report 25755082 (Version 1)
Quarter: 2025Q3

REPORT INFORMATION
  Report Type: Spontaneous
  Country: CN (occurrence: CN)
  Receive Date: 20250903
  Receipt Date: 20250903
  Transmission Date: 20251021
  Serious: Yes (Other)
  Sender: ORGANON
  Company Number: CN-ORGANON-O2508CHN002189

PATIENT
  Age: 35 Year
  Sex: Male
  Weight: 90 kg

DRUGS (4)
  1. DIPROSPAN [Suspect]
     Active Substance: BETAMETHASONE DIPROPIONATE\BETAMETHASONE SODIUM PHOSPHATE
     Indication: Joint effusion
     Dosage: 1ML, QD, INTRAARTICULARLY
     Route: 014
     Dates: start: 20250825, end: 20250825
  2. SODIUM HYALURONATE [Suspect]
     Active Substance: HYALURONATE SODIUM
     Indication: Joint effusion
     Dosage: 2.5ML, QD, INTRAARTICULARLY (CROSS LINKED)
     Route: 014
     Dates: start: 20250825, end: 20250825
  3. LIDOCAINE HYDROCHLORIDE [Suspect]
     Active Substance: LIDOCAINE HYDROCHLORIDE
     Indication: Joint effusion
     Dosage: 5ML, QD, TOPICAL INJECTION
     Route: 061
     Dates: start: 20250825, end: 20250825
  4. GENTAMICIN SULFATE [Suspect]
     Active Substance: GENTAMICIN SULFATE
     Indication: Joint effusion
     Dosage: 2ML, QD, INTRAARTICULARLY
     Route: 014
     Dates: start: 20250825, end: 20250825

REACTIONS (5)
  - Vomiting [Recovering/Resolving]
  - Hypotension [Recovering/Resolving]
  - Sinus tachycardia [Recovering/Resolving]
  - Hypoaesthesia [Recovering/Resolving]
  - Hyperhidrosis [Recovering/Resolving]

NARRATIVE: CASE EVENT DATE: 20250825
